FAERS Safety Report 18644826 (Version 1)
Quarter: 2020Q4

REPORT INFORMATION
  Report Type: Report from Study
  Country: TR (occurrence: TR)
  Receive Date: 20201221
  Receipt Date: 20201221
  Transmission Date: 20210114
  Serious: No
  Sender: FDA-Public Use
  Company Number: TR-ALLERGAN-2047409US

PATIENT

DRUGS (1)
  1. DEX 0.7MG INS (9632X) [Suspect]
     Active Substance: DEXAMETHASONE
     Indication: DIABETIC RETINAL OEDEMA
     Dosage: 0.7 MG, SINGLE
     Route: 031

REACTIONS (2)
  - Complication of device insertion [Unknown]
  - Needle issue [Unknown]
